FAERS Safety Report 8119684 (Version 2)
Quarter: 2013Q1

REPORT INFORMATION
  Report Type: Spontaneous
  Country: TW (occurrence: TW)
  Receive Date: 20110902
  Receipt Date: 20130312
  Transmission Date: 20140127
  Serious: Yes (Other)
  Sender: FDA-Public Use
  Company Number: TW-PFIZER INC-2011203085

PATIENT
  Age: 28 Year
  Sex: Female

DRUGS (3)
  1. CYTARABINE [Suspect]
     Indication: NON-HODGKIN^S LYMPHOMA
     Dosage: 30 MG, CYCLIC
     Route: 037
  2. METHOTREXATE [Suspect]
     Indication: NON-HODGKIN^S LYMPHOMA
     Dosage: 12 MG, CYCLIC
     Route: 037
  3. HYDROCORTISONE SODIUM SUCCINATE [Suspect]
     Indication: NON-HODGKIN^S LYMPHOMA
     Dosage: 24 MG IN TOTAL OF 8 SESSIONS

REACTIONS (5)
  - Myelopathy [Unknown]
  - Paraesthesia [Unknown]
  - Muscular weakness [Unknown]
  - Dysuria [Unknown]
  - Sensorimotor disorder [Unknown]
